FAERS Safety Report 8088930 (Version 3)
Quarter: 2012Q4

REPORT INFORMATION
  Report Type: 
  Country: US (occurrence: US)
  Receive Date: 20110812
  Receipt Date: 20121012
  Transmission Date: 20130627
  Serious: Yes (Other)
  Sender: FDA-Public Use
  Company Number: US-US-EMD SERONO, INC.-7075472

PATIENT
  Age: 31 Year
  Sex: Female
  Weight: 43 kg

DRUGS (10)
  1. REBIF [Suspect]
     Indication: MULTIPLE SCLEROSIS
     Route: 058
     Dates: start: 20110628, end: 20110803
  2. REBIF [Suspect]
     Dates: end: 20120209
  3. REBIF [Suspect]
     Dates: start: 20120818
  4. TYLENOL [Concomitant]
     Indication: PREMEDICATION
  5. IBUPROFEN [Concomitant]
     Indication: PREMEDICATION
  6. PAXIL [Concomitant]
     Indication: DEPRESSION
  7. NEURONTIN [Concomitant]
     Indication: PAIN
  8. LORTAB [Concomitant]
     Indication: PAIN
  9. BACLOFEN [Concomitant]
     Indication: MUSCLE SPASTICITY
  10. XANAX [Concomitant]
     Indication: ANXIETY

REACTIONS (4)
  - Benign uterine neoplasm [Recovered/Resolved]
  - Weight decreased [Unknown]
  - Injection site erythema [Not Recovered/Not Resolved]
  - Influenza like illness [Unknown]
